FAERS Safety Report 9223155 (Version 1)
Quarter: 2013Q1

REPORT INFORMATION
  Report Type: Spontaneous
  Country: US (occurrence: None)
  Receive Date: 20120914
  Receipt Date: 20120914
  Transmission Date: 20140127
  Serious: Yes (Other)
  Sender: FDA-Public Use
  Company Number: JPI-P-016854

PATIENT
  Age: 34 Year
  Sex: Male
  Weight: 70.31 kg

DRUGS (2)
  1. XYREM (500 MILLIGRAM/MILLILITERS, SOLUTION) (SODIUM OXYBATE) [Suspect]
     Indication: CATAPLEXY
     Dosage: 6 GM (3 GM,2 IN 1 D)
     Route: 048
     Dates: start: 20110809, end: 201108
  2. AMPHETAMINE [Concomitant]

REACTIONS (6)
  - Depressed level of consciousness [None]
  - Body temperature decreased [None]
  - Heart rate decreased [None]
  - Malaise [None]
  - Vomiting [None]
  - Cold sweat [None]
